FAERS Safety Report 7822253-X (Version None)
Quarter: 2011Q4

REPORT INFORMATION
  Report Type: 
  Country: None (occurrence: None)
  Receive Date: 20111018
  Receipt Date: 20110218
  Transmission Date: 20120403
  Serious: No
  Sender: FDA-Public Use
  Company Number: US-ASTRAZENECA-2011SE09703

PATIENT

DRUGS (2)
  1. SYMBICORT [Suspect]
     Dosage: 80/4.5 MG TWO PUFFS DAILY
     Route: 055
  2. SYMBICORT [Suspect]
     Dosage: 160/4.5 MG 4 PUFFS DAILY
     Route: 055

REACTIONS (1)
  - CONDITION AGGRAVATED [None]
